FAERS Safety Report 23321719 (Version 2)
Quarter: 2024Q1

REPORT INFORMATION
  Report Type: Spontaneous
  Country: US (occurrence: US)
  Receive Date: 20231220
  Receipt Date: 20240118
  Transmission Date: 20240410
  Serious: Yes (Other)
  Sender: FDA-Public Use
  Company Number: US-SK LIFE SCIENCE, INC.-SKPVG-2023-001187

PATIENT

DRUGS (4)
  1. XCOPRI [Suspect]
     Active Substance: CENOBAMATE
     Indication: Seizure
     Dosage: STARTER PACKAGE ONCE A DAY
     Route: 048
     Dates: start: 20230831
  2. XCOPRI [Suspect]
     Active Substance: CENOBAMATE
     Dosage: TITRATION PACK 1
     Route: 048
     Dates: start: 20231023
  3. XCOPRI [Suspect]
     Active Substance: CENOBAMATE
     Dosage: 50/100MG TITRATION PACK
     Route: 048
  4. KEPPRA [Concomitant]
     Active Substance: LEVETIRACETAM
     Indication: Product used for unknown indication
     Dosage: SIX KEPPRA^S A DAY
     Route: 065

REACTIONS (2)
  - Loss of consciousness [Unknown]
  - Product dose omission issue [Recovered/Resolved]
